FAERS Safety Report 8032602-8 (Version None)
Quarter: 2012Q1

REPORT INFORMATION
  Report Type: 
  Country: None (occurrence: None)
  Receive Date: 20120105
  Receipt Date: 20111227
  Transmission Date: 20120608
  Serious: Yes (Life-Threatening)
  Sender: FDA-Public Use
  Company Number: 1147810

PATIENT
  Age: 56 Year
  Sex: Male
  Weight: 98 kg

DRUGS (5)
  1. DEXAMETHASONE TAB [Concomitant]
  2. ONDANSETRON [Concomitant]
  3. HYDROXYZINE [Concomitant]
  4. CARBOPLATIN [Suspect]
     Indication: NON-SMALL CELL LUNG CANCER
     Dosage: 35.714 MG, 750 MG EVERY 21 DAYS, INTRAVENOUS (NOT OTHERWISE SPECIFIED)
     Route: 042
     Dates: start: 20111012, end: 20111215
  5. IRINOTECAN HCL [Concomitant]

REACTIONS (6)
  - VOMITING [None]
  - BRONCHOSPASM [None]
  - PRURITUS [None]
  - ERYTHEMA [None]
  - HYPERHIDROSIS [None]
  - TACHYCARDIA [None]
